FAERS Safety Report 15653603 (Version 1)
Quarter: 2018Q4

REPORT INFORMATION
  Report Type: Spontaneous
  Country: SE (occurrence: SE)
  Receive Date: 20181124
  Receipt Date: 20181124
  Transmission Date: 20190205
  Serious: Yes (Hospitalization)
  Sender: FDA-Public Use
  Company Number: SE-TEVA-2018-SE-978214

PATIENT
  Age: 57 Year
  Sex: Female

DRUGS (7)
  1. PANODIL [Concomitant]
     Active Substance: ACETAMINOPHEN
  2. PERFALGAN [Concomitant]
     Active Substance: ACETAMINOPHEN
  3. KETOGAN [Concomitant]
  4. OMEPRAZOLE. [Suspect]
     Active Substance: OMEPRAZOLE
     Dosage: 40 MILLIGRAM DAILY;
     Route: 048
     Dates: start: 201012, end: 201101
  5. GABAPENTIN. [Concomitant]
     Active Substance: GABAPENTIN
  6. INNOHEP [Concomitant]
     Active Substance: TINZAPARIN SODIUM
  7. ZOFRAN [Concomitant]
     Active Substance: ONDANSETRON HYDROCHLORIDE
     Route: 048

REACTIONS (1)
  - Liver function test abnormal [Unknown]

NARRATIVE: CASE EVENT DATE: 201101
